FAERS Safety Report 7641614-5 (Version None)
Quarter: 2011Q3

REPORT INFORMATION
  Report Type: 
  Country: None (occurrence: None)
  Receive Date: 20110728
  Receipt Date: 20110708
  Transmission Date: 20111222
  Serious: Yes (Hospitalization)
  Sender: FDA-Public Use
  Company Number: US-GLAXOSMITHKLINE-A0730522A

PATIENT
  Age: 50 Year
  Sex: Male
  Weight: 84.1 kg

DRUGS (4)
  1. HUMALOG [Concomitant]
  2. LIPITOR [Concomitant]
  3. ZOCOR [Concomitant]
  4. AVANDIA [Suspect]
     Indication: DIABETES MELLITUS
     Dosage: 8MG PER DAY
     Route: 048
     Dates: start: 20000801

REACTIONS (3)
  - HEMIPLEGIA [None]
  - CEREBROVASCULAR ACCIDENT [None]
  - HEART INJURY [None]
